FAERS Safety Report 9171141 (Version 2)
Quarter: 2013Q1

REPORT INFORMATION
  Report Type: Spontaneous
  Country: CL (occurrence: CL)
  Receive Date: 20130319
  Receipt Date: 20130325
  Transmission Date: 20140127
  Serious: No
  Sender: FDA-Public Use
  Company Number: CL-ROCHE-1203449

PATIENT
  Age: 50 Year
  Sex: Female
  Weight: 58 kg

DRUGS (2)
  1. HERCEPTIN [Suspect]
     Indication: BREAST CANCER
     Route: 042
     Dates: start: 20120725
  2. EXEMESTANO [Concomitant]
     Indication: BREAST CANCER
     Route: 048
     Dates: start: 20130126

REACTIONS (1)
  - Myopathy [Recovering/Resolving]
